FAERS Safety Report 5338910-3 (Version None)
Quarter: 2007Q2

REPORT INFORMATION
  Report Type: 
  Country: None (occurrence: None)
  Receive Date: 20070404
  Receipt Date: 20060824
  Transmission Date: 20071010
  Serious: Yes (Other)
  Sender: FDA-Public Use
  Company Number: HQWYE018628AUG06

PATIENT
  Age: 38 Year
  Sex: Male
  Weight: 77.18 kg

DRUGS (1)
  1. ALAVERT [Suspect]
     Indication: HYPERSENSITIVITY
     Dosage: 1 TABLET AS NEEDED, ORAL
     Route: 048
     Dates: start: 20040101

REACTIONS (1)
  - PSYCHOMOTOR HYPERACTIVITY [None]
